FAERS Safety Report 6430762-3 (Version None)
Quarter: 2009Q4

REPORT INFORMATION
  Report Type: 
  Country: None (occurrence: None)
  Receive Date: 20091106
  Receipt Date: 20091029
  Transmission Date: 20100525
  Serious: Yes (Hospitalization, Other)
  Sender: FDA-Public Use
  Company Number: JP-B.I. PHARMACEUTICALS,INC./RIDGEFIELD-2009-BP-09828NB

PATIENT
  Sex: Male
  Weight: 50.5 kg

DRUGS (5)
  1. MICARDIS [Suspect]
     Indication: HYPERTENSION
     Dosage: 40 MG
     Route: 048
     Dates: start: 20060718, end: 20081218
  2. LANSOPRAZOLE [Concomitant]
     Dosage: 30 MG
     Route: 048
     Dates: start: 20080616, end: 20081218
  3. ATELEC [Concomitant]
     Indication: HYPERTENSION
     Dosage: 10 MG
     Route: 048
     Dates: start: 20060701, end: 20081218
  4. FERROMIA [Concomitant]
     Indication: IRON DEFICIENCY ANAEMIA
     Dosage: 50 MG
     Route: 048
     Dates: start: 20080601, end: 20081218
  5. NAUZELIN [Concomitant]
     Dosage: 30 MG
     Route: 048
     Dates: start: 20080601, end: 20081218

REACTIONS (1)
  - BRAIN STEM HAEMORRHAGE [None]
